FAERS Safety Report 14919168 (Version 2)
Quarter: 2018Q2

REPORT INFORMATION
  Report Type: Report from Study
  Country: US (occurrence: US)
  Receive Date: 20180521
  Receipt Date: 20180612
  Transmission Date: 20180711
  Serious: Yes (Other)
  Sender: FDA-Public Use
  Company Number: US-AMGEN-USASL2018067071

PATIENT
  Age: 62 Year
  Sex: Male

DRUGS (1)
  1. REPATHA [Suspect]
     Active Substance: EVOLOCUMAB
     Indication: TYPE IIA HYPERLIPIDAEMIA
     Dosage: 420 MG, QMO
     Route: 058

REACTIONS (9)
  - Arthralgia [Recovered/Resolved]
  - Thinking abnormal [Recovered/Resolved]
  - Sinus congestion [Recovered/Resolved]
  - Lip swelling [Unknown]
  - Sedation [Recovered/Resolved]
  - Appetite disorder [Unknown]
  - Back pain [Recovered/Resolved]
  - Weight decreased [Unknown]
  - Nausea [Recovered/Resolved]
